FAERS Safety Report 5535379-0 (Version None)
Quarter: 2007Q4

REPORT INFORMATION
  Report Type: 
  Country: None (occurrence: None)
  Receive Date: 20071206
  Receipt Date: 20071123
  Transmission Date: 20080405
  Serious: Yes (Death, Hospitalization)
  Sender: FDA-Public Use
  Company Number: AU-PFIZER INC-2007086554

PATIENT
  Sex: Female
  Weight: 44 kg

DRUGS (12)
  1. SUTENT [Suspect]
     Indication: RENAL CELL CARCINOMA STAGE UNSPECIFIED
     Route: 048
     Dates: start: 20070504, end: 20070921
  2. COLOXYL WITH SENNA [Concomitant]
     Dosage: TEXT:50MG/8MG-FREQ:2 TABLETS TWICE DAILY
  3. FOLIC ACID [Concomitant]
  4. FOSAMAX ONCE WEEKLY [Concomitant]
  5. OXYCONTIN [Concomitant]
  6. MAXOLON [Concomitant]
  7. PANAMAX [Concomitant]
  8. RHINOCORT [Concomitant]
     Dosage: TEXT:64MCG/DOSE-FREQ:ONE SPRAY DAILY BOTH SIDES
     Route: 045
  9. SEREPAX [Concomitant]
  10. TEGRETOL [Concomitant]
  11. TRITACE [Concomitant]
  12. GABAPENTIN [Concomitant]

REACTIONS (7)
  - ANOREXIA [None]
  - ASTHENIA [None]
  - CACHEXIA [None]
  - DISEASE PROGRESSION [None]
  - PAIN [None]
  - RENAL CELL CARCINOMA STAGE UNSPECIFIED [None]
  - TREATMENT FAILURE [None]
